FAERS Safety Report 14326159 (Version 1)
Quarter: 2017Q4

REPORT INFORMATION
  Report Type: Spontaneous
  Country: US (occurrence: US)
  Receive Date: 20171227
  Receipt Date: 20171227
  Transmission Date: 20180321
  Serious: No
  Sender: FDA-Public Use
  Company Number: US-PFIZER INC-2017545271

PATIENT
  Age: 69 Year
  Sex: Female

DRUGS (19)
  1. CALCIUM AND VIT D [Concomitant]
     Active Substance: CALCIUM\VITAMIN D
     Dosage: UNK([CALCIUM:600]-[ D3:400])
  2. VICTOZA [Concomitant]
     Active Substance: LIRAGLUTIDE
     Dosage: UNK
  3. MYRBETRIQ [Concomitant]
     Active Substance: MIRABEGRON
     Dosage: 50 MG, UNK
  4. CRANBERRY. [Concomitant]
     Active Substance: CRANBERRY
     Dosage: 250 MG, UNK
  5. MIRALAX [Concomitant]
     Active Substance: POLYETHYLENE GLYCOL 3350
     Dosage: UNK (3350 NF)
  6. OXYBUTYNIN. [Concomitant]
     Active Substance: OXYBUTYNIN CHLORIDE
     Dosage: 10 MG, UNK
  7. FASLODEX [Concomitant]
     Active Substance: FULVESTRANT
     Dosage: UNK
  8. ATORVASTATIN [Concomitant]
     Active Substance: ATORVASTATIN
     Dosage: 40 MG, UNK
  9. FENTANYL DURA [Concomitant]
     Dosage: UNK(50MCG/HR)
  10. KRILL OIL [Concomitant]
     Active Substance: DIETARY SUPPLEMENT
     Dosage: 300 MG, UNK
  11. VITAMIN B12 [Concomitant]
     Active Substance: CYANOCOBALAMIN
     Dosage: UNK(1000 CR)
  12. MELATONIN [Concomitant]
     Active Substance: MELATONIN
     Dosage: 5 MG, UNK
  13. IBRANCE [Suspect]
     Active Substance: PALBOCICLIB
     Indication: BONE NEOPLASM
     Dosage: 100 MG (1 CAPSULE), DAILY
     Route: 048
     Dates: start: 20170822
  14. BACLOFEN. [Concomitant]
     Active Substance: BACLOFEN
     Dosage: 10 MG, UNK
  15. COENZYME Q10 [Concomitant]
     Active Substance: UBIDECARENONE
     Dosage: 100 MG, UNK
  16. APAP W/HYDROCODONE [Concomitant]
     Active Substance: ACETAMINOPHEN\HYDROCODONE
     Dosage: UNK([HYDROCO:5 MG]-[ APAP: 325 MG])
  17. PAROXETINE. [Concomitant]
     Active Substance: PAROXETINE
     Dosage: 40 MG, UNK
  18. NASAL DECONGESTANT [Concomitant]
     Active Substance: OXYMETAZOLINE HYDROCHLORIDE\PSEUDOEPHEDRINE HYDROCHLORIDE
     Dosage: UNK
  19. METFORMIN [Concomitant]
     Active Substance: METFORMIN HYDROCHLORIDE
     Dosage: 500 MG, UNK

REACTIONS (2)
  - Product use in unapproved indication [Unknown]
  - White blood cell count decreased [Not Recovered/Not Resolved]

NARRATIVE: CASE EVENT DATE: 20170822
